FAERS Safety Report 4898579-9 (Version None)
Quarter: 2006Q1

REPORT INFORMATION
  Report Type: 
  Country: None (occurrence: None)
  Receive Date: 20060130
  Receipt Date: 20060119
  Transmission Date: 20060701
  Serious: Yes (Hospitalization, Other)
  Sender: FDA-Public Use
  Company Number: USA-2006-0023324

PATIENT
  Age: 21 Year
  Sex: Female

DRUGS (1)
  1. MORPHINE SULFATE [Suspect]
     Dosage: INTRADERMAL
     Route: 023

REACTIONS (4)
  - DRUG ABUSER [None]
  - GENERAL PHYSICAL HEALTH DETERIORATION [None]
  - LEGAL PROBLEM [None]
  - NAUSEA [None]
